FAERS Safety Report 21442461 (Version 1)
Quarter: 2022Q4

REPORT INFORMATION
  Report Type: Spontaneous
  Country: None (occurrence: CN)
  Receive Date: 20221011
  Receipt Date: 20221011
  Transmission Date: 20230112
  Serious: Yes (Hospitalization)
  Sender: FDA-Public Use
  Company Number: CN-Jiangsu Hengrui Medicine Co., Ltd.-2133709

PATIENT
  Age: 50 Year
  Sex: Male

DRUGS (4)
  1. CYCLOPHOSPHAMIDE [Suspect]
     Active Substance: CYCLOPHOSPHAMIDE
     Indication: Diffuse large B-cell lymphoma
     Route: 041
     Dates: start: 20200916, end: 20200916
  2. PREDNISONE [Suspect]
     Active Substance: PREDNISONE
     Route: 041
     Dates: start: 20200916, end: 20200921
  3. PIRARUBICIN HYDROCHLORIDE [Suspect]
     Active Substance: PIRARUBICIN HYDROCHLORIDE
     Route: 041
     Dates: start: 20200916, end: 20200916
  4. VINDESINE SULFATE [Suspect]
     Active Substance: VINDESINE SULFATE
     Dates: start: 20200916, end: 20200916

REACTIONS (1)
  - Hiccups [Recovering/Resolving]

NARRATIVE: CASE EVENT DATE: 20200917
